FAERS Safety Report 13993010 (Version 5)
Quarter: 2018Q2

REPORT INFORMATION
  Report Type: Spontaneous
  Country: US (occurrence: US)
  Receive Date: 20170920
  Receipt Date: 20180423
  Transmission Date: 20180711
  Serious: Yes (Death, Other)
  Sender: FDA-Public Use
  Company Number: US-PFIZER INC-2017405182

PATIENT
  Age: 88 Year
  Sex: Male
  Weight: 86.17 kg

DRUGS (2)
  1. REVATIO [Suspect]
     Active Substance: SILDENAFIL CITRATE
     Indication: PULMONARY HYPERTENSION
     Dosage: 20 MG, 2X/DAY
  2. REVATIO [Suspect]
     Active Substance: SILDENAFIL CITRATE
     Dosage: 20 MG, UNK

REACTIONS (5)
  - Renal failure [Fatal]
  - Product use issue [Unknown]
  - Eating disorder [Unknown]
  - Weight decreased [Unknown]
  - Cardiac failure [Fatal]
